FAERS Safety Report 15110884 (Version 1)
Quarter: 2018Q3

REPORT INFORMATION
  Report Type: Spontaneous
  Country: FR (occurrence: FR)
  Receive Date: 20180705
  Receipt Date: 20180705
  Transmission Date: 20181010
  Serious: Yes (Hospitalization)
  Sender: FDA-Public Use
  Company Number: FR-PFIZER INC-2018261804

PATIENT
  Age: 68 Year
  Sex: Female
  Weight: 123 kg

DRUGS (8)
  1. FUCIDINE /00065701/ [Interacting]
     Active Substance: FUSIDIC ACID
     Indication: ERYSIPELAS
     Dosage: 1500 MG, 1X/DAY
     Route: 048
     Dates: end: 20180523
  2. MYCOSTER /00619301/ [Concomitant]
     Active Substance: CICLOPIROX\CICLOPIROX OLAMINE
  3. DIFFU K [Concomitant]
     Active Substance: POTASSIUM CHLORIDE
  4. FORTZAAR [Concomitant]
     Active Substance: HYDROCHLOROTHIAZIDE\LOSARTAN POTASSIUM
  5. TAHOR [Suspect]
     Active Substance: ATORVASTATIN CALCIUM
     Indication: HYPERCHOLESTEROLAEMIA
     Dosage: 10 MG, 1X/DAY
     Route: 048
     Dates: end: 20180522
  6. GLIMEPIRIDE. [Concomitant]
     Active Substance: GLIMEPIRIDE
  7. LASILIX FAIBLE [Concomitant]
     Active Substance: FUROSEMIDE
  8. MOPRAL /00661201/ [Concomitant]
     Active Substance: OMEPRAZOLE SODIUM

REACTIONS (3)
  - Rhabdomyolysis [Recovering/Resolving]
  - Acute kidney injury [Recovering/Resolving]
  - Drug interaction [Recovered/Resolved]

NARRATIVE: CASE EVENT DATE: 20180523
